FAERS Safety Report 5410015-2 (Version None)
Quarter: 2007Q3

REPORT INFORMATION
  Report Type: 
  Country: None (occurrence: None)
  Receive Date: 20070809
  Receipt Date: 20070808
  Transmission Date: 20080115
  Serious: Yes (Life-Threatening, Hospitalization, Other)
  Sender: FDA-Public Use
  Company Number: JP-ABBOTT-07P-087-0376993-00

PATIENT
  Age: 23 Year
  Sex: Female

DRUGS (3)
  1. CLARITHROMYCIN [Suspect]
     Indication: NASOPHARYNGITIS
     Route: 048
     Dates: start: 20060627, end: 20060630
  2. CLOFEDANOL HYDROCHLORIDE [Concomitant]
     Indication: NASOPHARYNGITIS
     Route: 048
     Dates: end: 20060630
  3. BROMHEXINE HYDROCHLORIDE [Concomitant]
     Indication: NASOPHARYNGITIS
     Route: 048
     Dates: end: 20060630

REACTIONS (3)
  - ELECTROCARDIOGRAM QT PROLONGED [None]
  - LOSS OF CONSCIOUSNESS [None]
  - TORSADE DE POINTES [None]
